FAERS Safety Report 20362649 (Version 1)
Quarter: 2022Q1

REPORT INFORMATION
  Report Type: Spontaneous
  Country: ES (occurrence: None)
  Receive Date: 20220121
  Receipt Date: 20220121
  Transmission Date: 20220423
  Serious: Yes (Other)
  Sender: FDA-Public Use
  Company Number: 2021A051632

PATIENT
  Age: 31 Year
  Sex: Female

DRUGS (12)
  1. QUETIAPINE [Interacting]
     Active Substance: QUETIAPINE
     Indication: Neuropsychiatric symptoms
     Route: 048
     Dates: start: 201108, end: 20110905
  2. QUETIAPINE [Interacting]
     Active Substance: QUETIAPINE
     Indication: Neuropsychiatric symptoms
     Route: 048
     Dates: start: 20110905
  3. QUETIAPINE [Interacting]
     Active Substance: QUETIAPINE
     Indication: Neuropsychiatric symptoms
     Route: 048
     Dates: start: 201109, end: 20111005
  4. QUETIAPINE [Interacting]
     Active Substance: QUETIAPINE
     Indication: Neuropsychiatric symptoms
     Route: 048
     Dates: start: 20111005, end: 201110
  5. METRONIDAZOLE [Interacting]
     Active Substance: METRONIDAZOLE
     Indication: Eczema
     Route: 065
     Dates: start: 20110928, end: 201110
  6. OMEPRAZOLE [Concomitant]
     Active Substance: OMEPRAZOLE
     Route: 065
  7. SERTRALINE [Concomitant]
     Active Substance: SERTRALINE HYDROCHLORIDE
     Route: 065
  8. DIAZEPAM [Concomitant]
     Active Substance: DIAZEPAM
     Route: 065
  9. IBUPROFEN [Concomitant]
     Active Substance: IBUPROFEN
     Indication: Analgesic therapy
     Route: 065
     Dates: start: 201108
  10. ACETAMINOPHEN [Concomitant]
     Active Substance: ACETAMINOPHEN
     Indication: Analgesic therapy
     Route: 065
     Dates: start: 201108
  11. AMOXICLAVULANIC [Concomitant]
     Indication: Urinary tract infection
     Route: 065
     Dates: start: 20110920
  12. CLONAZEPAM [Concomitant]
     Active Substance: CLONAZEPAM
     Route: 065

REACTIONS (3)
  - Drug interaction [Unknown]
  - Parkinsonism [Recovered/Resolved]
  - Sedation [Unknown]

NARRATIVE: CASE EVENT DATE: 20110921
